FAERS Safety Report 15544709 (Version 3)
Quarter: 2019Q1

REPORT INFORMATION
  Report Type: Report from Study
  Country: US (occurrence: US)
  Receive Date: 20181024
  Receipt Date: 20190115
  Transmission Date: 20190417
  Serious: Yes (Other)
  Sender: FDA-Public Use
  Company Number: US-UCBSA-2018014596

PATIENT
  Age: 38 Year
  Sex: Female

DRUGS (17)
  1. BRIVARACETAM [Suspect]
     Active Substance: BRIVARACETAM
     Dosage: 50 MG, 2X/DAY (BID)
     Route: 048
     Dates: start: 20180308, end: 201803
  2. IBUPROFEN. [Concomitant]
     Active Substance: IBUPROFEN
     Indication: HEADACHE
     Dosage: UNK
     Dates: start: 1990
  3. BRIVARACETAM [Suspect]
     Active Substance: BRIVARACETAM
     Dosage: 100 MG, 2X/DAY (BID)
     Route: 048
  4. BRIVARACETAM [Suspect]
     Active Substance: BRIVARACETAM
     Dosage: 25 MG QAM AND 50 MG QHS
     Route: 048
     Dates: start: 20180302, end: 20180309
  5. BRIVARACETAM [Suspect]
     Active Substance: BRIVARACETAM
     Dosage: 75 MG, 2X/DAY (BID)
     Route: 048
     Dates: start: 201803, end: 20180917
  6. ZOLOFT [Concomitant]
     Active Substance: SERTRALINE HYDROCHLORIDE
     Indication: ANXIETY
     Dosage: 50 MG, ONCE DAILY (QD)
     Route: 048
     Dates: start: 201801
  7. LAMOTRIGINE. [Concomitant]
     Active Substance: LAMOTRIGINE
     Indication: EPILEPSY
     Dosage: 250 MG, 2X/DAY (BID)
     Route: 048
  8. LORAZEPAM. [Concomitant]
     Active Substance: LORAZEPAM
     Indication: ANXIETY
     Dosage: 0.5 MG, AS NEEDED (PRN)
     Route: 048
     Dates: start: 2009
  9. ACETAMINOPHEN. [Concomitant]
     Active Substance: ACETAMINOPHEN
     Indication: HEADACHE
     Dosage: UNK
     Dates: start: 1990
  10. VITAMIN B COMPLEX [Concomitant]
     Active Substance: CYANOCOBALAMIN\DEXPANTHENOL\NIACINAMIDE\PYRIDOXINE HYDROCHLORIDE\RIBOFLAVIN 5^-PHOSPHATE SODIUM\THIAMINE HYDROCHLORIDE\VITAMIN B COMPLEX
     Indication: NUTRITIONAL SUPPLEMENTATION
     Dosage: UNK
     Dates: start: 200706
  11. IBUPROFEN. [Concomitant]
     Active Substance: IBUPROFEN
     Indication: PAIN
  12. BRIVARACETAM [Suspect]
     Active Substance: BRIVARACETAM
     Indication: EPILEPSY
     Dosage: 25 MG, 2X/DAY (BID)
     Route: 048
     Dates: start: 20180222, end: 20180301
  13. BRIVARACETAM [Suspect]
     Active Substance: BRIVARACETAM
     Dosage: 200 MG, 2X/DAY (BID)
     Route: 048
     Dates: start: 20180920
  14. MAGNESIUM [Concomitant]
     Active Substance: MAGNESIUM
     Indication: NUTRITIONAL SUPPLEMENTATION
     Dosage: 250 MG, ONCE DAILY (QD)
     Route: 048
     Dates: start: 201801
  15. ACETAMINOPHEN. [Concomitant]
     Active Substance: ACETAMINOPHEN
     Indication: PAIN
  16. FOLIC ACID. [Concomitant]
     Active Substance: FOLIC ACID
     Indication: NUTRITIONAL SUPPLEMENTATION
  17. MULTIVITAMINS [Concomitant]
     Active Substance: VITAMINS
     Indication: NUTRITIONAL SUPPLEMENTATION
     Dosage: UNK
     Dates: start: 1998

REACTIONS (16)
  - Diarrhoea [Recovered/Resolved]
  - Headache [Recovered/Resolved]
  - Balance disorder [Recovering/Resolving]
  - Concussion [Unknown]
  - Memory impairment [Recovering/Resolving]
  - Off label use [Unknown]
  - Overdose [Unknown]
  - Vision blurred [Recovered/Resolved]
  - Tremor [Recovered/Resolved]
  - Irritability [Not Recovered/Not Resolved]
  - Road traffic accident [Unknown]
  - Transaminases increased [Not Recovered/Not Resolved]
  - Dizziness [Recovered/Resolved]
  - Macrocytosis [Not Recovered/Not Resolved]
  - Seizure [Unknown]
  - Influenza like illness [Recovered/Resolved]

NARRATIVE: CASE EVENT DATE: 20180222
